FAERS Safety Report 5021405-4 (Version None)
Quarter: 2006Q2

REPORT INFORMATION
  Report Type: 
  Country: None (occurrence: None)
  Receive Date: 20060605
  Receipt Date: 20060525
  Transmission Date: 20061013
  Serious: Yes (Hospitalization)
  Sender: FDA-Public Use
  Company Number: 2005112006

PATIENT
  Age: 64 Year
  Sex: Male
  Weight: 83.9154 kg

DRUGS (12)
  1. NEURONTIN [Suspect]
     Indication: PAIN
     Dosage: 300 MG
  2. ACTIQ [Suspect]
     Indication: PAIN
     Dosage: 400 MCG, AS NECESSARY), ORAL
     Route: 048
     Dates: start: 20040101
  3. PERCOCET [Suspect]
     Indication: PAIN
  4. OXYCODONE AND ACETAMINOPHEN [Suspect]
     Indication: PAIN
  5. FENTANYL [Suspect]
     Indication: PAIN
     Dosage: 50 MCG, 1 IN 72 HR)
  6. TYLENOL W/ CODEINE NO. 3 [Suspect]
     Indication: PAIN
  7. EFEXOR XR (VENLAFAXINE) [Concomitant]
  8. LIPITOR [Concomitant]
  9. METOPROLOL SUCCINATE [Concomitant]
  10. AMBIEN [Concomitant]
  11. NEXIUM [Concomitant]
  12. GLIPIZIDE [Concomitant]

REACTIONS (4)
  - CONSTIPATION [None]
  - INAPPROPRIATE SCHEDULE OF DRUG ADMINISTRATION [None]
  - NAUSEA [None]
  - VOMITING [None]
